FAERS Safety Report 11521206 (Version 3)
Quarter: 2015Q4

REPORT INFORMATION
  Report Type: Report from Study
  Country: BR (occurrence: BR)
  Receive Date: 20150918
  Receipt Date: 20151005
  Transmission Date: 20160304
  Serious: Yes (Hospitalization, Other)
  Sender: FDA-Public Use
  Company Number: PHHY2012BR109329

PATIENT
  Sex: Female
  Weight: 42 kg

DRUGS (12)
  1. METHOTREXATE [Concomitant]
     Active Substance: METHOTREXATE
     Indication: RHEUMATOID ARTHRITIS
     Dosage: 3 DF, WEEKLY
     Route: 048
  2. EXJADE [Suspect]
     Active Substance: DEFERASIROX
     Dosage: 2 DF, UNK
     Route: 048
  3. FOLIC ACID. [Concomitant]
     Active Substance: FOLIC ACID
     Indication: SICKLE CELL ANAEMIA
     Dosage: 1 DF, QD
     Route: 048
  4. EXJADE [Suspect]
     Active Substance: DEFERASIROX
     Dosage: 2 DF, UNK
     Route: 048
  5. HYDROXYUREA. [Concomitant]
     Active Substance: HYDROXYUREA
     Indication: ARTHRALGIA
  6. PREDNISONE. [Concomitant]
     Active Substance: PREDNISONE
     Dosage: 2 DF, QD
     Route: 048
  7. HYDROXYUREA. [Concomitant]
     Active Substance: HYDROXYUREA
     Indication: SICKLE CELL ANAEMIA
     Dosage: 2 DF, QD
     Route: 048
  8. OSCAL D [Concomitant]
     Active Substance: CALCIUM CARBONATE\CHOLECALCIFEROL
     Indication: PAIN
     Dosage: 1 DF, QD
     Route: 048
  9. EXJADE [Suspect]
     Active Substance: DEFERASIROX
     Indication: SICKLE CELL ANAEMIA
     Dosage: 2 DF (25 MG/KG), QD
     Route: 048
     Dates: start: 20120914, end: 20121108
  10. PREDNISONE. [Concomitant]
     Active Substance: PREDNISONE
     Indication: RHEUMATOID ARTHRITIS
     Dosage: 1 DF, QD
     Route: 048
  11. HYDROXYUREA. [Concomitant]
     Active Substance: HYDROXYUREA
     Indication: SICKLE CELL ANAEMIA WITH CRISIS
     Dosage: 2 DF, QD
     Route: 048
  12. DEFLAZACORTE [Concomitant]
     Active Substance: DEFLAZACORT
     Indication: PAIN
     Dosage: 4 DF, QD
     Route: 048

REACTIONS (13)
  - Pain [Unknown]
  - Pain in extremity [Not Recovered/Not Resolved]
  - Osteonecrosis [Not Recovered/Not Resolved]
  - Gastrointestinal infection [Unknown]
  - Diarrhoea [Unknown]
  - Sickle cell anaemia with crisis [Recovered/Resolved]
  - Gait disturbance [Unknown]
  - Sickle cell anaemia with crisis [Recovering/Resolving]
  - Serum ferritin increased [Unknown]
  - Arthralgia [Not Recovered/Not Resolved]
  - Blood iron increased [Unknown]
  - Malaise [Unknown]
  - Mobility decreased [Unknown]
